FAERS Safety Report 6752382-3 (Version None)
Quarter: 2010Q2

REPORT INFORMATION
  Report Type: 
  Country: None (occurrence: None)
  Receive Date: 20100601
  Receipt Date: 20100601
  Transmission Date: 20101027
  Serious: Yes (Hospitalization)
  Sender: FDA-Public Use
  Company Number: None

PATIENT
  Age: 56 Year
  Sex: Female
  Weight: 68.49 kg

DRUGS (2)
  1. CIPROFLOXACIN [Suspect]
     Indication: CHRONIC OBSTRUCTIVE PULMONARY DISEASE
     Dosage: 500MG BID PO
     Route: 048
     Dates: start: 20100507, end: 20100526
  2. CIPROFLOXACIN [Suspect]
     Indication: PNEUMONIA
     Dosage: 500MG BID PO
     Route: 048
     Dates: start: 20100507, end: 20100526

REACTIONS (4)
  - DYSPNOEA [None]
  - HYPOXIA [None]
  - LOCAL SWELLING [None]
  - SWELLING FACE [None]
